FAERS Safety Report 12913935 (Version 3)
Quarter: 2019Q1

REPORT INFORMATION
  Report Type: Spontaneous
  Country: CA (occurrence: CA)
  Receive Date: 20161104
  Receipt Date: 20190215
  Transmission Date: 20190417
  Serious: Yes (Other)
  Sender: FDA-Public Use
  Company Number: CA-BRISTOL-MYERS SQUIBB COMPANY-BMS-2016-093087

PATIENT
  Age: 67 Year
  Sex: Female

DRUGS (5)
  1. HYDROXYCHLOROQUINE [Suspect]
     Active Substance: HYDROXYCHLOROQUINE
     Indication: PRODUCT USED FOR UNKNOWN INDICATION
     Dosage: UNK
     Route: 065
     Dates: start: 20151214, end: 20160401
  2. METHOTREXATE. [Suspect]
     Active Substance: METHOTREXATE
     Indication: RHEUMATOID ARTHRITIS
     Dosage: UNK
     Route: 065
     Dates: start: 20160630, end: 20160915
  3. ENBREL [Suspect]
     Active Substance: ETANERCEPT
     Indication: RHEUMATOID ARTHRITIS
     Route: 065
  4. REMICADE [Suspect]
     Active Substance: INFLIXIMAB
     Indication: PRODUCT USED FOR UNKNOWN INDICATION
     Route: 042
  5. ORENCIA [Suspect]
     Active Substance: ABATACEPT
     Indication: PRODUCT USED FOR UNKNOWN INDICATION
     Route: 065

REACTIONS (16)
  - C-reactive protein abnormal [Unknown]
  - Drug intolerance [Unknown]
  - Monocytosis [Unknown]
  - Contraindicated product administered [Unknown]
  - Red blood cell sedimentation rate abnormal [Unknown]
  - Infection [Unknown]
  - Urinary tract infection [Unknown]
  - Bronchitis [Unknown]
  - Psoriasis [Unknown]
  - Arthritis [Unknown]
  - Neutropenia [Unknown]
  - Synovitis [Unknown]
  - Nausea [Unknown]
  - Pruritus [Unknown]
  - Sinusitis [Unknown]
  - Chronic sinusitis [Unknown]

NARRATIVE: CASE EVENT DATE: 20160926
